FAERS Safety Report 26190606 (Version 1)
Quarter: 2025Q4

REPORT INFORMATION
  Report Type: Spontaneous
  Country: US (occurrence: None)
  Receive Date: 20251222
  Receipt Date: 20251222
  Transmission Date: 20260117
  Serious: Yes (Hospitalization)
  Sender: FDA-CTU
  Company Number: None

PATIENT
  Age: 55 Year
  Sex: Male

DRUGS (10)
  1. TACROLIMUS [Suspect]
     Active Substance: TACROLIMUS
     Indication: Liver transplant
     Dosage: FREQUENCY : DAILY;
     Route: 048
  2. URSODIOL 300 MG CAPSULES [Concomitant]
  3. ZOLPIDEM TARTRATE [Concomitant]
     Active Substance: ZOLPIDEM TARTRATE
  4. D-AMPHETAMINE ER 20 MG SALT COMBO CAPSULE [Concomitant]
  5. OXYCODONE 5 MG TABLETS [Concomitant]
  6. FLUOROURACIL [Concomitant]
     Active Substance: FLUOROURACIL
  7. FAMOTIDINE [Concomitant]
     Active Substance: FAMOTIDINE
  8. MAGNESIUM OXIDE 400 MG TABLETS [Concomitant]
  9. PREDNISONE [Concomitant]
     Active Substance: PREDNISONE
  10. TRULICITY 1.5 MG/0.5 ML [Concomitant]

REACTIONS (1)
  - Nephrolithiasis [None]
